FAERS Safety Report 8013359-3 (Version None)
Quarter: 2011Q4

REPORT INFORMATION
  Report Type: 
  Country: None (occurrence: None)
  Receive Date: 20111229
  Receipt Date: 20111227
  Transmission Date: 20120403
  Serious: Yes (Death)
  Sender: FDA-Public Use
  Company Number: PHHY2011NL103305

PATIENT
  Sex: Male

DRUGS (9)
  1. NEXIUM [Concomitant]
  2. CALCICHEW-D3 [Concomitant]
  3. ANANDRON [Concomitant]
  4. SIMVASTATIN [Concomitant]
  5. ZOMETA [Suspect]
     Dosage: 4 MG/5 ML PER 28 DAYS
     Dates: start: 20111111
  6. ASCAL [Concomitant]
  7. ZOMETA [Suspect]
     Dosage: 4 MG/5 ML PER 28 DAYS
  8. ADALAT [Concomitant]
  9. METFORMIN HCL [Concomitant]

REACTIONS (2)
  - AORTIC ANEURYSM [None]
  - PROSTATE CANCER [None]
